FAERS Safety Report 8593248-6 (Version None)
Quarter: 2012Q3

REPORT INFORMATION
  Report Type: 
  Country: None (occurrence: None)
  Receive Date: 20120814
  Receipt Date: 20070831
  Transmission Date: 20120928
  Serious: Yes (Other)
  Sender: FDA-Public Use
  Company Number: CO-PFIZER INC-2012194037

PATIENT
  Age: 65 Year
  Sex: Female

DRUGS (4)
  1. NORVASC [Suspect]
     Indication: HYPERTENSION
     Dosage: 5 MG, 1X/DAY
  2. LIPITOR [Suspect]
     Indication: DYSLIPIDAEMIA
     Dosage: 10 MG, 2X/DAY
  3. QUINAPRIL AND HYDROCHLOROTHIAZIDE [Suspect]
     Indication: HYPERTENSION
     Dosage: [QUINAPRIL HCL 20]/[HYDROCHLOROTHIAZIDE 12.5] MG, 2X/DAY
  4. GLIBENCLAMIDE [Concomitant]
     Dosage: 5 MG, 3X/DAY

REACTIONS (2)
  - WEIGHT DECREASED [None]
  - HYPERTENSIVE EMERGENCY [None]
